FAERS Safety Report 13362604 (Version 2)
Quarter: 2017Q2

REPORT INFORMATION
  Report Type: Spontaneous
  Country: US (occurrence: US)
  Receive Date: 20170323
  Receipt Date: 20170518
  Transmission Date: 20170830
  Serious: No
  Sender: FDA-Public Use
  Company Number: US-PFIZER INC-2017128853

PATIENT
  Age: 69 Year
  Sex: Female

DRUGS (1)
  1. GABAPENTIN. [Suspect]
     Active Substance: GABAPENTIN
     Indication: NEUROPATHY PERIPHERAL
     Dosage: 100MG ONCE PER DAY AT NIGHT

REACTIONS (2)
  - Restless legs syndrome [Unknown]
  - Product use in unapproved indication [Unknown]
